FAERS Safety Report 10674540 (Version 5)
Quarter: 2015Q1

REPORT INFORMATION
  Report Type: Spontaneous
  Country: JP (occurrence: JP)
  Receive Date: 20141224
  Receipt Date: 20150316
  Transmission Date: 20150720
  Serious: Yes (Hospitalization)
  Sender: FDA-Public Use
  Company Number: JP-SA-2014SA172719

PATIENT
  Age: 87 Year
  Sex: Female

DRUGS (8)
  1. LUPRAC [Suspect]
     Active Substance: TORSEMIDE
     Indication: HYPERTENSION
     Route: 048
     Dates: start: 20130417, end: 20140624
  2. GANATON [Concomitant]
     Active Substance: ITOPRIDE
     Indication: GASTRITIS
     Route: 048
     Dates: start: 20141112, end: 20141201
  3. CETILO [Concomitant]
     Indication: CONSTIPATION
     Route: 048
     Dates: start: 20141126, end: 20141201
  4. IRBETAN [Suspect]
     Active Substance: IRBESARTAN
     Indication: HYPERTENSION
     Route: 048
     Dates: start: 20130417, end: 20141201
  5. LUPRAC [Suspect]
     Active Substance: TORSEMIDE
     Indication: HYPERTENSION
     Route: 048
     Dates: start: 20140625, end: 20141201
  6. ACINON [Concomitant]
     Active Substance: NIZATIDINE
     Indication: GASTRITIS
     Route: 048
     Dates: start: 20141029
  7. HERBESSER [Concomitant]
     Active Substance: DILTIAZEM HYDROCHLORIDE
     Indication: HYPERTENSION
     Route: 048
     Dates: start: 20130417
  8. ZYLORIC [Concomitant]
     Active Substance: ALLOPURINOL
     Indication: HYPERURICAEMIA
     Route: 048
     Dates: start: 20130417, end: 20141201

REACTIONS (3)
  - Constipation [Recovered/Resolved]
  - Gastritis [Recovered/Resolved]
  - Hyponatraemia [Recovered/Resolved]

NARRATIVE: CASE EVENT DATE: 20141112
